FAERS Safety Report 15124642 (Version 2)
Quarter: 2019Q1

REPORT INFORMATION
  Report Type: Spontaneous
  Country: US (occurrence: US)
  Receive Date: 20180710
  Receipt Date: 20190208
  Transmission Date: 20190417
  Serious: No
  Sender: FDA-Public Use
  Company Number: US-PFIZER INC-2018276584

PATIENT
  Age: 15 Year
  Sex: Female

DRUGS (1)
  1. XELJANZ [Suspect]
     Active Substance: TOFACITINIB CITRATE
     Indication: ARTERITIS
     Dosage: 1.5 DF, DAILY (1 DOSE FORM ORALLY EVERY MORNING AND 1/2 DOSE FORM ORALLY EVERY EVENING)
     Route: 048
     Dates: start: 201701

REACTIONS (3)
  - Product use in unapproved indication [Unknown]
  - Product use issue [Unknown]
  - Nasopharyngitis [Unknown]

NARRATIVE: CASE EVENT DATE: 201701
